FAERS Safety Report 13648959 (Version 12)
Quarter: 2018Q2

REPORT INFORMATION
  Report Type: Spontaneous
  Country: US (occurrence: US)
  Receive Date: 20170613
  Receipt Date: 20180405
  Transmission Date: 20180711
  Serious: Yes (Hospitalization)
  Sender: FDA-Public Use
  Company Number: US-ACTELION-A-NJ2017-155131

PATIENT
  Age: 53 Year
  Sex: Female
  Weight: 79.37 kg

DRUGS (6)
  1. OPSUMIT [Suspect]
     Active Substance: MACITENTAN
     Indication: PULMONARY HYPERTENSION
     Dosage: 10 MG, QD
     Route: 048
     Dates: start: 20160202
  2. REVATIO [Concomitant]
     Active Substance: SILDENAFIL CITRATE
  3. VELETRI [Suspect]
     Active Substance: EPOPROSTENOL
     Dosage: 19 NG/KG, PER MIN
     Route: 042
  4. VELETRI [Suspect]
     Active Substance: EPOPROSTENOL
     Indication: PULMONARY HYPERTENSION
     Dosage: 21 NG/KG, PER MIN
     Route: 042
  5. REMODULIN [Concomitant]
     Active Substance: TREPROSTINIL
  6. ADCIRCA [Concomitant]
     Active Substance: TADALAFIL

REACTIONS (23)
  - Staphylococcal infection [Recovered/Resolved]
  - Oedema [Recovered/Resolved]
  - Catheter site discharge [Recovered/Resolved]
  - Joint range of motion decreased [Recovered/Resolved]
  - Blood culture positive [Recovered/Resolved]
  - Pain in jaw [Unknown]
  - Device related infection [Recovered/Resolved]
  - Device loosening [Recovered/Resolved]
  - Fatigue [Recovered/Resolved]
  - Device occlusion [Unknown]
  - Pulmonary arterial hypertension [Recovered/Resolved]
  - Bacterial infection [Recovered/Resolved]
  - Diarrhoea [Recovered/Resolved]
  - Tremor [Recovered/Resolved]
  - Musculoskeletal pain [Recovered/Resolved]
  - Dyspnoea [Unknown]
  - Therapy change [Recovered/Resolved]
  - Bacteraemia [Recovered/Resolved]
  - Chills [Recovered/Resolved]
  - Nausea [Recovered/Resolved]
  - Therapy non-responder [Unknown]
  - Vomiting [Recovered/Resolved]
  - Pulmonary hypertension [Unknown]

NARRATIVE: CASE EVENT DATE: 20170515
